FAERS Safety Report 7971815-8 (Version None)
Quarter: 2011Q4

REPORT INFORMATION
  Report Type: 
  Country: None (occurrence: None)
  Receive Date: 20111212
  Receipt Date: 20111209
  Transmission Date: 20120403
  Serious: Yes (Other)
  Sender: FDA-Public Use
  Company Number: US-CEPHALON-2011006179

PATIENT
  Sex: Female

DRUGS (1)
  1. TREANDA [Suspect]
     Route: 042

REACTIONS (1)
  - EJECTION FRACTION DECREASED [None]
